FAERS Safety Report 24366953 (Version 1)
Quarter: 2024Q3

REPORT INFORMATION
  Report Type: Spontaneous
  Country: CO (occurrence: CO)
  Receive Date: 20240926
  Receipt Date: 20240926
  Transmission Date: 20241016
  Serious: Yes (Other)
  Sender: VERTEX
  Company Number: CO-VERTEX PHARMACEUTICALS-2024-015147

PATIENT
  Age: 23 Year
  Sex: Female
  Weight: 57 kg

DRUGS (1)
  1. TRIKAFTA [Suspect]
     Active Substance: ELEXACAFTOR\IVACAFTOR\TEZACAFTOR
     Indication: Cystic fibrosis
     Dosage: UNKNOWN DOSAGE REGIMEN
     Route: 048
     Dates: end: 20240821

REACTIONS (4)
  - Cholecystectomy [Unknown]
  - Pneumothorax [Recovered/Resolved]
  - Sinusitis [Unknown]
  - Hypertension [Unknown]
